FAERS Safety Report 24996628 (Version 2)
Quarter: 2025Q1

REPORT INFORMATION
  Report Type: Spontaneous
  Country: IR (occurrence: IR)
  Receive Date: 20250221
  Receipt Date: 20250305
  Transmission Date: 20250408
  Serious: No
  Sender: ASTELLAS
  Company Number: IR-ASTELLAS-2025-AER-010156

PATIENT
  Age: 62 Year
  Sex: Female

DRUGS (1)
  1. VESICARE [Suspect]
     Active Substance: SOLIFENACIN SUCCINATE
     Indication: Hypertonic bladder
     Route: 048
     Dates: start: 20250216

REACTIONS (5)
  - Lethargy [Not Recovered/Not Resolved]
  - Dry mouth [Not Recovered/Not Resolved]
  - Somnolence [Not Recovered/Not Resolved]
  - Inappropriate schedule of product administration [Unknown]
  - Overdose [Unknown]

NARRATIVE: CASE EVENT DATE: 20250216
